FAERS Safety Report 9765410 (Version 1)
Quarter: 2013Q4

REPORT INFORMATION
  Report Type: Spontaneous
  Country: US (occurrence: US)
  Receive Date: 20131217
  Receipt Date: 20131217
  Transmission Date: 20140711
  Serious: No
  Sender: FDA-Public Use
  Company Number: US-BIOGENIDEC-2013BI110248

PATIENT
  Sex: Female
  Weight: 52 kg

DRUGS (1)
  1. TECFIDERA [Suspect]
     Indication: MULTIPLE SCLEROSIS
     Route: 048
     Dates: start: 20130706

REACTIONS (2)
  - Pain [Recovered/Resolved with Sequelae]
  - Flushing [Recovered/Resolved with Sequelae]
